FAERS Safety Report 4632005-X (Version None)
Quarter: 2005Q2

REPORT INFORMATION
  Report Type: 
  Country: None (occurrence: None)
  Receive Date: 20050411
  Receipt Date: 20050318
  Transmission Date: 20051028
  Serious: Yes (Disabling, Other)
  Sender: FDA-Public Use
  Company Number: PHEH2005US03401

PATIENT
  Age: 80 Year
  Sex: Male

DRUGS (9)
  1. ZOMETA [Suspect]
     Dosage: 4 MG, Q3MO
     Route: 042
     Dates: start: 20040114, end: 20041208
  2. ECOTRIN [Concomitant]
  3. ZOLADEX [Concomitant]
     Indication: PROSTATE CANCER
  4. SYNTHROID [Concomitant]
  5. CEPHALEXIN [Concomitant]
  6. CALTRATE [Concomitant]
  7. DETROL [Concomitant]
  8. SULINDAC [Concomitant]
  9. NEURONTIN [Concomitant]

REACTIONS (11)
  - AMYOTROPHIC LATERAL SCLEROSIS [None]
  - ASTHENIA [None]
  - BLOOD GLUCOSE INCREASED [None]
  - CERVICAL SPINAL STENOSIS [None]
  - CSF TEST ABNORMAL [None]
  - DENERVATION ATROPHY [None]
  - HAEMOGLOBIN DECREASED [None]
  - ILL-DEFINED DISORDER [None]
  - INTERVERTEBRAL DISC DEGENERATION [None]
  - MUSCLE CONTRACTIONS INVOLUNTARY [None]
  - SKIN ULCER [None]
